FAERS Safety Report 4890459-8 (Version None)
Quarter: 2005Q4

REPORT INFORMATION
  Report Type: 
  Country: None (occurrence: None)
  Receive Date: 20051216
  Receipt Date: 20050916
  Transmission Date: 20060501
  Serious: No
  Sender: FDA-Public Use
  Company Number: BDI-007525

PATIENT
  Age: 46 Year
  Sex: Male
  Weight: 68 kg

DRUGS (6)
  1. MULTIHANCE [Suspect]
     Indication: NUCLEAR MAGNETIC RESONANCE IMAGING BRAIN
     Dosage: 30 ML ONCE IV
     Route: 042
     Dates: start: 20050908, end: 20050908
  2. MULTIHANCE [Suspect]
     Indication: TRANSIENT ISCHAEMIC ATTACK
     Dosage: 30 ML ONCE IV
     Route: 042
     Dates: start: 20050908, end: 20050908
  3. LIPITOR /01326101/ [Concomitant]
  4. ASPIRIN [Concomitant]
  5. NEXIUM [Concomitant]
  6. NICOPATCH [Concomitant]

REACTIONS (1)
  - URTICARIA [None]
